FAERS Safety Report 9268875 (Version 2)
Quarter: 2013Q4

REPORT INFORMATION
  Report Type: Spontaneous
  Country: GB (occurrence: GB)
  Receive Date: 20130503
  Receipt Date: 20131016
  Transmission Date: 20140711
  Serious: Yes (Life-Threatening, Hospitalization)
  Sender: FDA-Public Use
  Company Number: PHHY2013GB042955

PATIENT
  Age: 67 Year
  Sex: Female
  Weight: 74.83 kg

DRUGS (5)
  1. BISOPROLOL FUMARATE [Suspect]
     Indication: HEART AND LUNG TRANSPLANT
     Dosage: 7.5 MG, UNK
     Route: 048
     Dates: start: 20130208
  2. BISOPROLOL FUMARATE [Suspect]
     Dosage: 7.5 MG, UNK
  3. BISOPROLOL FUMARATE [Suspect]
     Dosage: 7.5 MG, UNK
  4. COZAAR [Concomitant]
  5. WARFARIN [Concomitant]

REACTIONS (4)
  - Arrhythmia supraventricular [Recovered/Resolved]
  - Pulse abnormal [Recovered/Resolved]
  - Blood pressure increased [Recovered/Resolved]
  - Product substitution issue [Unknown]
